FAERS Safety Report 6550857-3 (Version None)
Quarter: 2010Q1

REPORT INFORMATION
  Report Type: 
  Country: None (occurrence: None)
  Receive Date: 20100122
  Receipt Date: 20100122
  Transmission Date: 20100710
  Serious: Yes (Hospitalization)
  Sender: FDA-Public Use
  Company Number: None

PATIENT
  Age: 58 Year
  Sex: Male
  Weight: 75.9 kg

DRUGS (2)
  1. CLOZAPINE [Suspect]
     Indication: SCHIZOAFFECTIVE DISORDER
     Dosage: 700 MG HS PO
     Route: 048
     Dates: start: 19980624, end: 20100112
  2. ZIPRASIDONE HCL [Suspect]
     Indication: SCHIZOAFFECTIVE DISORDER
     Dosage: 80 MG HS PO
     Route: 048
     Dates: start: 20020412, end: 20100112

REACTIONS (2)
  - ELECTROCARDIOGRAM [None]
  - HYPONATRAEMIA [None]
